FAERS Safety Report 7091370-7 (Version None)
Quarter: 2010Q4

REPORT INFORMATION
  Report Type: 
  Country: None (occurrence: None)
  Receive Date: 20101109
  Receipt Date: 20101102
  Transmission Date: 20110411
  Serious: Yes (Other)
  Sender: FDA-Public Use
  Company Number: A0886404A

PATIENT
  Age: 57 Year
  Sex: Male
  Weight: 101.4 kg

DRUGS (11)
  1. SELZENTRY [Suspect]
     Indication: HIV INFECTION
     Dosage: 300MG TWICE PER DAY
     Route: 048
     Dates: start: 20100830
  2. FUZEON [Suspect]
     Indication: HIV INFECTION
     Dosage: 90MG TWICE PER DAY
     Route: 058
     Dates: start: 20100830
  3. INTELENCE [Suspect]
     Indication: HIV INFECTION
     Dosage: 200MG TWICE PER DAY
     Route: 048
     Dates: start: 20100830
  4. AMBIEN [Concomitant]
     Dosage: 10MG AS REQUIRED
     Route: 048
  5. LOVAZA [Concomitant]
     Dosage: 1G FOUR TIMES PER DAY
     Route: 048
     Dates: start: 20100722
  6. PROZAC [Concomitant]
     Dosage: 40MG PER DAY
     Route: 048
     Dates: start: 20100617
  7. LITHIUM [Concomitant]
     Dosage: 300MG TWICE PER DAY
     Route: 048
  8. ZYPREXA [Concomitant]
     Dosage: 20MG PER DAY
     Route: 048
  9. METFORMIN [Concomitant]
     Dosage: 850MG THREE TIMES PER DAY
     Route: 048
     Dates: start: 20100928
  10. HUMULIN 70/30 [Concomitant]
     Dosage: 20UNIT TWICE PER DAY
     Route: 058
     Dates: start: 20101004
  11. LIPITOR [Concomitant]
     Dosage: 40MG UNKNOWN
     Route: 048

REACTIONS (4)
  - DIABETES MELLITUS [None]
  - HYPERGLYCAEMIA [None]
  - POLYDIPSIA [None]
  - POLYURIA [None]
